FAERS Safety Report 5650938-2 (Version None)
Quarter: 2008Q1

REPORT INFORMATION
  Report Type: 
  Country: None (occurrence: None)
  Receive Date: 20080131
  Receipt Date: 20071228
  Transmission Date: 20080703
  Serious: No
  Sender: FDA-Public Use
  Company Number: US200711000288

PATIENT
  Age: 69 Year
  Sex: Male

DRUGS (14)
  1. BYETTA [Suspect]
     Indication: TYPE 2 DIABETES MELLITUS
     Dosage: 5 UG, 2/D, SUBCUTANEOUS ; 10 UG, 2/D, SUBCUTANEOUS
     Route: 058
     Dates: start: 20060101, end: 20070301
  2. BYETTA [Suspect]
     Indication: TYPE 2 DIABETES MELLITUS
     Dosage: 5 UG, 2/D, SUBCUTANEOUS ; 10 UG, 2/D, SUBCUTANEOUS
     Route: 058
     Dates: start: 20070301, end: 20070301
  3. BYETTA [Suspect]
     Indication: TYPE 2 DIABETES MELLITUS
     Dosage: 5 UG, 2/D, SUBCUTANEOUS ; 10 UG, 2/D, SUBCUTANEOUS
     Route: 058
     Dates: start: 20070301
  4. BYETTA [Suspect]
  5. GLIMEPIRIDE [Concomitant]
  6. GLIPZIIDE (GLIPIZIDE) [Concomitant]
  7. HYDRAZIDE (HYDROCHLOROTHIAZIDE) [Concomitant]
  8. LISINOPRIL /USA/ (LISINOPRIL) [Concomitant]
  9. METOPROLOL TARTRATE [Concomitant]
  10. DOXAZOSIN (DOXAZOSIN) [Concomitant]
  11. POTASSIUM (POTASSIUM) [Concomitant]
  12. LASIX /USA/ (FUROSEMIDE) [Concomitant]
  13. ALLOPURINOL [Concomitant]
  14. CADUET (AMLODIPINE BESILATE, ATORVASTATIN CALCIUM) [Concomitant]

REACTIONS (1)
  - BLOOD GLUCOSE INCREASED [None]
